FAERS Safety Report 6816608-X (Version None)
Quarter: 2010Q2

REPORT INFORMATION
  Report Type: 
  Country: None (occurrence: None)
  Receive Date: 20100630
  Receipt Date: 20100621
  Transmission Date: 20101027
  Serious: Yes (Death, Other)
  Sender: FDA-Public Use
  Company Number: 2010US002304

PATIENT
  Age: 38 Year
  Sex: Female

DRUGS (6)
  1. PROGRAF [Suspect]
     Indication: RENAL TRANSPLANT
     Dosage: 4 MG, /D
     Dates: start: 20100208
  2. MYCOPHENOLATE MOFETIL [Concomitant]
  3. TRIMETHOPRIM [Concomitant]
  4. FUROSEMIDE [Concomitant]
  5. OMEPRAZOLE [Concomitant]
  6. ACETAMINOPHEN [Concomitant]

REACTIONS (2)
  - APPENDICITIS [None]
  - PERITONITIS [None]
